FAERS Safety Report 23103497 (Version 1)
Quarter: 2023Q4

REPORT INFORMATION
  Report Type: Spontaneous
  Country: US (occurrence: None)
  Receive Date: 20231022
  Receipt Date: 20231022
  Transmission Date: 20240109
  Serious: Yes (Hospitalization)
  Sender: FDA-Public Use
  Company Number: None

PATIENT
  Age: 72 Year
  Sex: Male
  Weight: 72.5 kg

DRUGS (1)
  1. ETHAMBUTOL HYDROCHLORIDE [Suspect]
     Active Substance: ETHAMBUTOL HYDROCHLORIDE
     Dosage: FREQUENCY : DAILY;?
     Route: 048
     Dates: start: 20210210, end: 20220214

REACTIONS (5)
  - Optic neuropathy [None]
  - Blindness [None]
  - Therapy interrupted [None]
  - Mycobacterium avium complex infection [None]
  - Cataract [None]

NARRATIVE: CASE EVENT DATE: 20220107
